FAERS Safety Report 15299559 (Version 1)
Quarter: 2018Q3

REPORT INFORMATION
  Report Type: Spontaneous
  Country: DE (occurrence: DE)
  Receive Date: 20180821
  Receipt Date: 20180821
  Transmission Date: 20181010
  Serious: Yes (Hospitalization, Other)
  Sender: FDA-Public Use
  Company Number: DE-TEVA-2018-DE-945262

PATIENT
  Age: 58 Year
  Sex: Female

DRUGS (4)
  1. SYCREST [Suspect]
     Active Substance: ASENAPINE MALEATE
     Dosage: 5 MILLIGRAM DAILY;
     Route: 048
     Dates: start: 20180110, end: 20180111
  2. CIPRALEX [Suspect]
     Active Substance: ESCITALOPRAM OXALATE
     Dosage: 5 MILLIGRAM DAILY;
     Route: 048
  3. DEXAMETHASONE. [Suspect]
     Active Substance: DEXAMETHASONE
     Dosage: 8 MILLIGRAM DAILY;
     Route: 048
     Dates: start: 20180102, end: 20180112
  4. PANTOPRAZOL [Concomitant]
     Active Substance: PANTOPRAZOLE SODIUM
     Dosage: 20 MILLIGRAM DAILY;
     Route: 048

REACTIONS (1)
  - Seizure [Recovered/Resolved]

NARRATIVE: CASE EVENT DATE: 20180111
